FAERS Safety Report 6356016-1 (Version None)
Quarter: 2009Q3

REPORT INFORMATION
  Report Type: 
  Country: None (occurrence: None)
  Receive Date: 20090914
  Receipt Date: 20090914
  Transmission Date: 20100115
  Serious: Yes (Other)
  Sender: FDA-Public Use
  Company Number: None

PATIENT
  Age: 53 Year
  Sex: Male
  Weight: 68.2 kg

DRUGS (9)
  1. PILOCARPINE [Suspect]
     Indication: GLARE
     Dosage: 1% PILOCARPINE, 1 DROP IN EACH EYE 1 TIME ONLY 031
     Dates: start: 20090830
  2. PILOCARPINE [Suspect]
     Indication: POST PROCEDURAL COMPLICATION
     Dosage: 1% PILOCARPINE, 1 DROP IN EACH EYE 1 TIME ONLY 031
     Dates: start: 20090830
  3. ATENOLOL [Concomitant]
  4. PERCOCET [Concomitant]
  5. TRAZODONE HCL [Concomitant]
  6. DOXYCYCLINE [Concomitant]
  7. LOVASTATIN [Concomitant]
  8. FISH OIL [Concomitant]
  9. MULTIVITIMIN [Concomitant]

REACTIONS (5)
  - ASTHENIA [None]
  - HEADACHE [None]
  - MIOSIS [None]
  - RETINAL TEAR [None]
  - VITREOUS DETACHMENT [None]
